FAERS Safety Report 24578568 (Version 2)
Quarter: 2024Q4

REPORT INFORMATION
  Report Type: Spontaneous
  Country: US (occurrence: US)
  Receive Date: 20241105
  Receipt Date: 20241112
  Transmission Date: 20250115
  Serious: Yes (Hospitalization, Other)
  Sender: SANDOZ
  Company Number: US-ROCHE-3552667

PATIENT
  Age: 53 Year
  Sex: Female

DRUGS (3)
  1. CELLCEPT [Suspect]
     Active Substance: MYCOPHENOLATE MOFETIL
     Indication: Product used for unknown indication
     Dosage: 500 MG, BID (TABLET)
     Route: 048
  2. RITUXIMAB [Suspect]
     Active Substance: RITUXIMAB
     Indication: Product used for unknown indication
     Dosage: 700 MG, QW
     Route: 040
     Dates: start: 2017
  3. XOLAIR [Suspect]
     Active Substance: OMALIZUMAB
     Indication: Product used for unknown indication
     Dosage: UNK
     Route: 065

REACTIONS (27)
  - Nausea [Recovered/Resolved]
  - Vomiting [Recovered/Resolved]
  - Breast cancer [Unknown]
  - Fibromyalgia [Unknown]
  - Cataract [Unknown]
  - Obesity [Unknown]
  - Iridocyclitis [Unknown]
  - Vitamin B12 deficiency [Unknown]
  - Osteoporosis [Unknown]
  - Adrenal insufficiency [Unknown]
  - Anti-neutrophil cytoplasmic antibody positive vasculitis [Unknown]
  - Generalised oedema [Unknown]
  - Urticarial vasculitis [Unknown]
  - Migraine [Unknown]
  - Blood pressure increased [Unknown]
  - Back pain [Unknown]
  - Drug hypersensitivity [Unknown]
  - Muscle spasms [Unknown]
  - Malaise [Unknown]
  - Urticaria [Unknown]
  - Anaemia [Unknown]
  - Pain [Unknown]
  - Depression [Unknown]
  - Fatigue [Unknown]
  - Anxiety [Unknown]
  - Dizziness [Recovered/Resolved]
  - Diarrhoea [Recovered/Resolved]

NARRATIVE: CASE EVENT DATE: 20210301
